FAERS Safety Report 6442829-4 (Version None)
Quarter: 2009Q4

REPORT INFORMATION
  Report Type: 
  Country: None (occurrence: None)
  Receive Date: 20091112
  Receipt Date: 20091104
  Transmission Date: 20100525
  Serious: Yes (Hospitalization)
  Sender: FDA-Public Use
  Company Number: 2009SP034368

PATIENT
  Age: 26 Year
  Sex: Female
  Weight: 46 kg

DRUGS (1)
  1. MARVELON 21 (DESOGESTREL/ETHINYLESTRADIOL) [Suspect]
     Indication: DYSMENORRHOEA
     Dosage: 1 DF;QD;PO
     Route: 048
     Dates: start: 20090901

REACTIONS (2)
  - CARDIAC FAILURE [None]
  - PNEUMONIA [None]
